FAERS Safety Report 13855450 (Version 1)
Quarter: 2017Q3

REPORT INFORMATION
  Report Type: Spontaneous
  Country: TT (occurrence: TT)
  Receive Date: 20170810
  Receipt Date: 20170810
  Transmission Date: 20171127
  Serious: Yes (Death)
  Sender: FDA-Public Use
  Company Number: TT-PFIZER INC-2017342191

PATIENT
  Age: 74 Year
  Sex: Male

DRUGS (1)
  1. TYGACIL [Suspect]
     Active Substance: TIGECYCLINE
     Dosage: UNK

REACTIONS (1)
  - Death [Fatal]
